FAERS Safety Report 10676524 (Version 25)
Quarter: 2016Q4

REPORT INFORMATION
  Report Type: Report from Study
  Country: CA (occurrence: CA)
  Receive Date: 20141226
  Receipt Date: 20161214
  Transmission Date: 20170206
  Serious: Yes (Hospitalization, Other)
  Sender: FDA-Public Use
  Company Number: PHHY2014CA032890

PATIENT
  Age: 53 Year
  Sex: Male

DRUGS (4)
  1. SANDOSTATIN LAR DEPOT [Suspect]
     Active Substance: OCTREOTIDE ACETATE
     Indication: NEUROENDOCRINE TUMOUR
     Dosage: 30 MG, QMO (EVERY 4 WEEKS)
     Route: 030
     Dates: start: 20140306
  2. TECTA [Concomitant]
     Active Substance: PANTOPRAZOLE MAGNESIUM
     Indication: PRODUCT USED FOR UNKNOWN INDICATION
     Route: 065
  3. LASIX [Concomitant]
     Active Substance: FUROSEMIDE
     Dosage: 20 MG, QD
     Route: 065
  4. LASIX [Concomitant]
     Active Substance: FUROSEMIDE
     Indication: PLEURAL EFFUSION
     Dosage: 20 MG, BID
     Route: 065
     Dates: start: 20151208

REACTIONS (35)
  - Dyspnoea at rest [Unknown]
  - Urinary incontinence [Unknown]
  - Limb discomfort [Unknown]
  - Dyspnoea [Unknown]
  - Multiple endocrine neoplasia Type 1 [Unknown]
  - Speech disorder [Unknown]
  - Diaphragmatic paralysis [Unknown]
  - Hyperhidrosis [Unknown]
  - Dyspepsia [Unknown]
  - Musculoskeletal pain [Recovering/Resolving]
  - Tremor [Unknown]
  - Pain [Unknown]
  - Blood pressure decreased [Unknown]
  - Chest pain [Recovering/Resolving]
  - Malaise [Unknown]
  - Oedema [Unknown]
  - Constipation [Unknown]
  - Vomiting [Unknown]
  - Body temperature decreased [Unknown]
  - Paraesthesia [Unknown]
  - Dizziness [Recovering/Resolving]
  - Headache [Recovering/Resolving]
  - Myocardial infarction [Unknown]
  - Blood pressure increased [Unknown]
  - Blood pressure systolic decreased [Unknown]
  - Blood pressure diastolic increased [Unknown]
  - Anxiety [Unknown]
  - Dyspnoea exertional [Unknown]
  - Nausea [Unknown]
  - Decreased activity [Unknown]
  - Weight increased [Unknown]
  - Cough [Unknown]
  - Diarrhoea [Recovered/Resolved]
  - Tachycardia [Unknown]
  - Heart rate irregular [Unknown]

NARRATIVE: CASE EVENT DATE: 201404
